FAERS Safety Report 5652128-6 (Version None)
Quarter: 2008Q1

REPORT INFORMATION
  Report Type: 
  Country: None (occurrence: None)
  Receive Date: 20080304
  Receipt Date: 20080228
  Transmission Date: 20080703
  Serious: Yes (Death)
  Sender: FDA-Public Use
  Company Number: E2020-01970-SPO-JP

PATIENT
  Age: 79 Year
  Sex: Female
  Weight: 50 kg

DRUGS (10)
  1. ARICEPT [Suspect]
     Indication: DEMENTIA ALZHEIMER'S TYPE
     Dosage: 3 MG, 1 IN 1 D, ORAL; 5 MG, 1 IN 1 D, ORAL
     Route: 048
     Dates: start: 20071021, end: 20071027
  2. ARICEPT [Suspect]
     Indication: DEMENTIA ALZHEIMER'S TYPE
     Dosage: 3 MG, 1 IN 1 D, ORAL; 5 MG, 1 IN 1 D, ORAL
     Route: 048
     Dates: start: 20071028, end: 20071128
  3. RISEDRONATE SODIUM [Concomitant]
  4. ALCENOL (ATENOLOL) [Concomitant]
  5. CANDESARTAN CILEXETIL [Concomitant]
  6. INHIBACE [Concomitant]
  7. MOBIC [Concomitant]
  8. MUCOSA (REBAMIPIDE) [Concomitant]
  9. DEPAS (ETIZOLAM) [Concomitant]
  10. BUP-4 (PROPIVERINE HYDROCHLORIDE) [Concomitant]

REACTIONS (9)
  - ARTHRALGIA [None]
  - BODY TEMPERATURE DECREASED [None]
  - CARDIAC FAILURE ACUTE [None]
  - CARDIO-RESPIRATORY ARREST [None]
  - COLD SWEAT [None]
  - MEMORY IMPAIRMENT [None]
  - SPEECH DISORDER [None]
  - SUDDEN DEATH [None]
  - TREMOR [None]
